FAERS Safety Report 6168309-1 (Version None)
Quarter: 2009Q2

REPORT INFORMATION
  Report Type: 
  Country: None (occurrence: None)
  Receive Date: 20090427
  Receipt Date: 20090417
  Transmission Date: 20091009
  Serious: Yes (Hospitalization, Other)
  Sender: FDA-Public Use
  Company Number: FR-PFIZER INC-2009181970

PATIENT

DRUGS (2)
  1. TAHOR [Suspect]
     Indication: HYPERCHOLESTEROLAEMIA
     Dosage: 10MG 1X/DAY 3 TIMES A WEEK
     Route: 048
     Dates: end: 20090309
  2. SPIROCTAZINE [Concomitant]
     Indication: HYPERTENSION
     Dosage: 25MG/15MG, 1X/DAY
     Route: 048

REACTIONS (3)
  - MYALGIA [None]
  - PAIN IN EXTREMITY [None]
  - PLEURISY [None]
